FAERS Safety Report 7490777-3 (Version None)
Quarter: 2011Q2

REPORT INFORMATION
  Report Type: 
  Country: None (occurrence: None)
  Receive Date: 20110519
  Receipt Date: 20110502
  Transmission Date: 20111010
  Serious: Yes (Death, Hospitalization, Other)
  Sender: FDA-Public Use
  Company Number: US-BAYER-200922407NA

PATIENT
  Age: 69 Year
  Sex: Female
  Weight: 76 kg

DRUGS (33)
  1. CRESTOR [Concomitant]
     Indication: BLOOD CHOLESTEROL INCREASED
     Dosage: 10 MG, LONG TERM
     Route: 048
  2. GLUCOVANCE [Concomitant]
     Indication: DIABETES MELLITUS
     Dosage: 5/500, LONG TERM
     Route: 048
  3. RED BLOOD CELLS [Concomitant]
     Dosage: 1 U, UNK
     Dates: start: 20060503
  4. NATRECOR [Concomitant]
     Dosage: UNK
     Route: 042
     Dates: start: 20060506
  5. NORVASC [Concomitant]
     Indication: HYPERTENSION
     Dosage: 10 MG, UNK
     Route: 048
     Dates: start: 20030101, end: 20050101
  6. PLATELETS [Concomitant]
     Dosage: 2 U, UNK
     Dates: start: 20060503
  7. CRYOPRECIPITATES [Concomitant]
     Dosage: 10 U, UNK
     Dates: start: 20060503
  8. OXYGEN [Concomitant]
     Dosage: UNK
     Dates: start: 20060509
  9. CONTRAST MEDIA [Concomitant]
     Indication: CATHETERISATION CARDIAC
     Dosage: 115 ML, UNK
     Dates: start: 20060502
  10. GLYBURIDE AND METFORMIN HYDROCHLORIDE [Concomitant]
     Dosage: UNK
     Route: 048
  11. DOBUTREX [Concomitant]
     Dosage: DURING SURGERY
  12. TRIDIL [Concomitant]
     Dosage: POSTOPERATIVE DRIP
     Route: 041
     Dates: start: 20060503
  13. AMIODARONE HCL [Concomitant]
     Dosage: POSTOPERATIVE DRIP
     Route: 041
     Dates: start: 20060503
  14. DOPAMINE HCL [Concomitant]
     Dosage: POSTOPERATIVE DRIP
     Route: 041
     Dates: start: 20060503
  15. TRASYLOL [Suspect]
     Dosage: 199 ML, LOADING DOSE
     Route: 042
     Dates: start: 20060503, end: 20060503
  16. TRASYLOL [Suspect]
     Dosage: 50 ML / HOUR DRIP RATE
     Route: 042
     Dates: start: 20060503, end: 20060503
  17. LEVOTHYROXINE SODIUM [Concomitant]
     Indication: HYPOTHYROIDISM
     Dosage: 150 ?G, LONG TERM
     Route: 048
  18. NIPRIDE [Concomitant]
     Dosage: POSTOPERATIVE DRIP
     Route: 041
     Dates: start: 20060503
  19. EPINEPHRINE [Concomitant]
     Dosage: DURING SURGERY
  20. ROCEPHIN [Concomitant]
     Dosage: 1 G, UNK
     Route: 030
     Dates: start: 20060213, end: 20060213
  21. FRESH FROZEN PLASMA [Concomitant]
     Dosage: 2 U, UNK
     Dates: start: 20060503
  22. FRESH FROZEN PLASMA [Concomitant]
     Dosage: 2 U, UNK
     Dates: start: 20060503
  23. TRASYLOL [Suspect]
     Indication: CORONARY ARTERY BYPASS
     Dosage: 1 ML, INITIAL DOSE
     Route: 042
     Dates: start: 20060503, end: 20060503
  24. DIOVAN HCT [Concomitant]
     Dosage: 80 MG, UNK
     Route: 048
     Dates: start: 20030101, end: 20050101
  25. RED BLOOD CELLS [Concomitant]
     Dosage: 5 U, UNK
     Dates: start: 20060503
  26. RED BLOOD CELLS [Concomitant]
     Dosage: 2 U, UNK
     Dates: start: 20060504
  27. NITROGLYCERIN [Concomitant]
     Dosage: DURING SURGERY
  28. VASOPRESSIN [VASOPRESSIN] [Concomitant]
     Dosage: POSTOPERATIVE DRIP
     Route: 041
     Dates: start: 20060503
  29. CRESTOR [Concomitant]
     Dosage: 10MG, LONG TERM
     Route: 048
  30. LESCOL [Concomitant]
     Dosage: 40 MG, UNK
     Route: 048
     Dates: start: 20030101, end: 20050101
  31. VASOPRESSIN [VASOPRESSIN] [Concomitant]
     Dosage: DURING SURGERY
  32. VITAMIN K [VITAMIN K NOS] [Concomitant]
     Dosage: 10 MG, UNK
     Route: 058
     Dates: start: 20060503
  33. LEVOPHED [Concomitant]
     Dosage: DURING SURGERY

REACTIONS (13)
  - INJURY [None]
  - MULTI-ORGAN FAILURE [None]
  - STRESS [None]
  - RENAL FAILURE [None]
  - ANXIETY [None]
  - DEATH [None]
  - UNEVALUABLE EVENT [None]
  - EMOTIONAL DISTRESS [None]
  - ANHEDONIA [None]
  - RENAL INJURY [None]
  - FEAR [None]
  - RENAL IMPAIRMENT [None]
  - PAIN [None]
